FAERS Safety Report 5504118-1 (Version None)
Quarter: 2007Q4

REPORT INFORMATION
  Report Type: 
  Country: None (occurrence: None)
  Receive Date: 20071101
  Receipt Date: 20071022
  Transmission Date: 20080405
  Serious: Yes (Life-Threatening, Other)
  Sender: FDA-Public Use
  Company Number: CH-GENENTECH-250177

PATIENT
  Sex: Male

DRUGS (1)
  1. MABTHERA [Suspect]
     Indication: TRANSPLANT REJECTION
     Dosage: UNK, UNK
     Route: 042
     Dates: start: 20070101

REACTIONS (1)
  - ACUTE RESPIRATORY DISTRESS SYNDROME [None]
